FAERS Safety Report 16090683 (Version 3)
Quarter: 2019Q2

REPORT INFORMATION
  Report Type: Spontaneous
  Country: US (occurrence: US)
  Receive Date: 20190319
  Receipt Date: 20190506
  Transmission Date: 20190711
  Serious: No
  Sender: FDA-Public Use
  Company Number: US-PFIZER INC-2019116579

PATIENT
  Age: 61 Year
  Sex: Female
  Weight: 67.59 kg

DRUGS (2)
  1. BOSULIF [Suspect]
     Active Substance: BOSUTINIB MONOHYDRATE
     Indication: CHRONIC MYELOID LEUKAEMIA
     Dosage: 400 MG, 1X/DAY
     Route: 048
     Dates: start: 20190306, end: 20190414
  2. BOSULIF [Suspect]
     Active Substance: BOSUTINIB MONOHYDRATE
     Indication: ACUTE MYELOID LEUKAEMIA

REACTIONS (12)
  - Pain of skin [Recovered/Resolved]
  - Influenza [Recovered/Resolved]
  - Bone pain [Recovering/Resolving]
  - Decreased appetite [Recovering/Resolving]
  - Pain [Unknown]
  - Nausea [Recovering/Resolving]
  - Fluid retention [Recovering/Resolving]
  - Diarrhoea [Recovered/Resolved]
  - Abdominal pain upper [Recovering/Resolving]
  - Malaise [Recovering/Resolving]
  - Headache [Recovered/Resolved]
  - Toothache [Recovering/Resolving]

NARRATIVE: CASE EVENT DATE: 20190306
